FAERS Safety Report 15786759 (Version 1)
Quarter: 2018Q4

REPORT INFORMATION
  Report Type: Spontaneous
  Country: US (occurrence: US)
  Receive Date: 20181212
  Receipt Date: 20181212
  Transmission Date: 20190205
  Serious: Yes (Death, Hospitalization)
  Sender: FDA-Public Use
  Company Number: None

PATIENT
  Age: 83 Year
  Sex: Female
  Weight: 65 kg

DRUGS (1)
  1. ALIMTA [Suspect]
     Active Substance: PEMETREXED DISODIUM
     Dates: end: 20181001

REACTIONS (11)
  - Pulmonary mass [None]
  - Anaemia [None]
  - Adenocarcinoma [None]
  - Presyncope [None]
  - Constipation [None]
  - Acute kidney injury [None]
  - Disease progression [None]
  - Cytology abnormal [None]
  - Respiratory failure [None]
  - Pleural effusion [None]
  - Pulse absent [None]

NARRATIVE: CASE EVENT DATE: 20181129
